FAERS Safety Report 8497745 (Version 1)
Quarter: 2020Q3

REPORT INFORMATION
  Report Type: Report from Study
  Country: CA (occurrence: CA)
  Receive Date: 20120406
  Receipt Date: 20120406
  Transmission Date: 20201104
  Serious: Yes (Other)
  Sender: FDA-Public Use
  Company Number: CA-JNJFOC-20120400584

PATIENT
  Age: 29 Year
  Sex: Male

DRUGS (4)
  1. CORTICOSTEROIDS [Concomitant]
  2. REMICADE [Suspect]
     Active Substance: INFLIXIMAB
     Indication: COLITIS ULCERATIVE
     Route: 042
     Dates: start: 20030710
  3. REMICADE [Suspect]
     Active Substance: INFLIXIMAB
     Route: 042
  4. IMMUNOSUPPRESIVES [Concomitant]

REACTIONS (1)
  - Carcinoid tumour of the appendix [Recovered/Resolved]

NARRATIVE: CASE EVENT DATE: 20110610
